APPROVED DRUG PRODUCT: CETIRIZINE HYDROCHLORIDE HIVES
Active Ingredient: CETIRIZINE HYDROCHLORIDE
Strength: 5MG
Dosage Form/Route: TABLET;ORAL
Application: A078933 | Product #003
Applicant: MARKSANS PHARMA LTD
Approved: Jun 15, 2010 | RLD: No | RS: No | Type: OTC